FAERS Safety Report 6667844-7 (Version None)
Quarter: 2010Q2

REPORT INFORMATION
  Report Type: 
  Country: None (occurrence: None)
  Receive Date: 20100405
  Receipt Date: 20100324
  Transmission Date: 20101027
  Serious: Yes (Hospitalization)
  Sender: FDA-Public Use
  Company Number: IT-PFIZER INC-2010038293

PATIENT
  Sex: Female

DRUGS (2)
  1. ALPRAZOLAM [Suspect]
     Dosage: UNK
  2. TRIAZOLAM [Suspect]
     Dosage: UNK

REACTIONS (4)
  - BRADYPHRENIA [None]
  - HYPOKINESIA [None]
  - INTENTIONAL DRUG MISUSE [None]
  - SOPOR [None]
